FAERS Safety Report 16634534 (Version 1)
Quarter: 2019Q3

REPORT INFORMATION
  Report Type: Spontaneous
  Country: US (occurrence: US)
  Receive Date: 20190726
  Receipt Date: 20190726
  Transmission Date: 20191004
  Serious: No
  Sender: FDA-Public Use
  Company Number: US-JNJFOC-20190727783

PATIENT
  Age: 83 Year
  Sex: Female
  Weight: 59.02 kg

DRUGS (3)
  1. TYLENOL [Suspect]
     Active Substance: ACETAMINOPHEN
     Indication: PAIN IN EXTREMITY
  2. CORTISONE [Concomitant]
     Active Substance: CORTISONE
     Indication: BACK PAIN
     Dosage: SHOTS
     Route: 065
  3. TYLENOL [Suspect]
     Active Substance: ACETAMINOPHEN
     Indication: BACK PAIN
     Dosage: 2 CAPLETS ONCE A DAY, SOMETIMES 2 TO 3 TIMES A DAY, SOMETIMES TWICE DAILY
     Route: 048

REACTIONS (2)
  - Constipation [Not Recovered/Not Resolved]
  - Inappropriate schedule of product administration [Not Recovered/Not Resolved]
